FAERS Safety Report 5614873-8 (Version None)
Quarter: 2008Q1

REPORT INFORMATION
  Report Type: 
  Country: None (occurrence: None)
  Receive Date: 20080131
  Receipt Date: 20080123
  Transmission Date: 20080703
  Serious: Yes (Other)
  Sender: FDA-Public Use
  Company Number: 2008SP002005

PATIENT
  Age: 63 Year
  Sex: Female

DRUGS (3)
  1. TEMODAL [Suspect]
     Indication: GLIOBLASTOMA MULTIFORME
     Dosage: 350 MG UNK
     Dates: start: 20070730, end: 20070814
  2. TEMODAL [Suspect]
     Indication: GLIOBLASTOMA MULTIFORME
     Dosage: 350 MG UNK
     Dates: end: 20070914
  3. COTRIM FORTE (BACTRIM /00086101/) [Suspect]
     Indication: DRUG USE FOR UNKNOWN INDICATION
     Dates: end: 20070814

REACTIONS (1)
  - CARDIAC FAILURE [None]
